FAERS Safety Report 7950547-6 (Version None)
Quarter: 2011Q4

REPORT INFORMATION
  Report Type: 
  Country: None (occurrence: None)
  Receive Date: 20111130
  Receipt Date: 20111121
  Transmission Date: 20120403
  Serious: Yes (Hospitalization, Other)
  Sender: FDA-Public Use
  Company Number: PHHY2011FR102039

PATIENT
  Age: 39 Year
  Sex: Female

DRUGS (5)
  1. GENTAMICIN [Suspect]
     Indication: OSTEITIS
  2. TRAMADOL HCL [Suspect]
     Indication: OSTEITIS
  3. NEFOPAM [Suspect]
     Indication: OSTEITIS
  4. CEFTRIAXONE [Suspect]
     Indication: OSTEITIS
  5. VANCOMYCIN [Suspect]
     Indication: OSTEITIS

REACTIONS (10)
  - RENAL FAILURE ACUTE [None]
  - DERMATITIS EXFOLIATIVE [None]
  - HYPOTENSION [None]
  - LEUKOCYTOSIS [None]
  - PYREXIA [None]
  - CYTOLYTIC HEPATITIS [None]
  - CHOLESTASIS [None]
  - FACE OEDEMA [None]
  - DRUG RASH WITH EOSINOPHILIA AND SYSTEMIC SYMPTOMS [None]
  - EOSINOPHILIA [None]
